FAERS Safety Report 12418706 (Version 1)
Quarter: 2016Q2

REPORT INFORMATION
  Report Type: Spontaneous
  Country: US (occurrence: None)
  Receive Date: 20160527
  Receipt Date: 20160527
  Transmission Date: 20160815
  Serious: Yes (Life-Threatening, Hospitalization)
  Sender: FDA-Public Use
  Company Number: None

PATIENT
  Age: 45 Year
  Sex: Male
  Weight: 122.02 kg

DRUGS (8)
  1. WARFARIN, 10MG [Suspect]
     Active Substance: WARFARIN
     Indication: DEEP VEIN THROMBOSIS
     Dosage: 10 MG TTSS ORAL
     Route: 048
     Dates: start: 20150901, end: 20160106
  2. LEVOTHYROXINE. [Concomitant]
     Active Substance: LEVOTHYROXINE
  3. AMLODIPINE [Concomitant]
     Active Substance: AMLODIPINE BESYLATE
  4. WARFARIN, 12.5MG [Suspect]
     Active Substance: WARFARIN
     Indication: DEEP VEIN THROMBOSIS
     Dosage: 12.5 MG MWF ORAL
     Route: 048
     Dates: start: 20150901, end: 20160106
  5. MAGNESIUM OXIDE. [Concomitant]
     Active Substance: MAGNESIUM OXIDE
  6. NEXIUM [Concomitant]
     Active Substance: ESOMEPRAZOLE MAGNESIUM
  7. RENVELA [Concomitant]
     Active Substance: SEVELAMER CARBONATE
  8. CARVEDILOL. [Concomitant]
     Active Substance: CARVEDILOL

REACTIONS (6)
  - Haemoglobin decreased [None]
  - International normalised ratio increased [None]
  - Peritonitis [None]
  - Haematuria [None]
  - Renal cyst infection [None]
  - Sepsis [None]

NARRATIVE: CASE EVENT DATE: 20160106
